FAERS Safety Report 13710757 (Version 1)
Quarter: 2017Q3

REPORT INFORMATION
  Report Type: Spontaneous
  Country: US (occurrence: US)
  Receive Date: 20170702
  Receipt Date: 20170702
  Transmission Date: 20171127
  Serious: Yes (Life-Threatening, Hospitalization, Disabling, Other)
  Sender: FDA-Public Use
  Company Number: None

PATIENT
  Age: 35 Year
  Sex: Female
  Weight: 81 kg

DRUGS (4)
  1. GABAPENTIN. [Concomitant]
     Active Substance: GABAPENTIN
  2. ATIVAN [Concomitant]
     Active Substance: LORAZEPAM
  3. LORAZEPAM. [Suspect]
     Active Substance: LORAZEPAM
     Indication: ANXIETY
  4. RISPERDAL [Concomitant]
     Active Substance: RISPERIDONE

REACTIONS (4)
  - Drug tolerance [None]
  - Withdrawal syndrome [None]
  - Brain injury [None]
  - Job dissatisfaction [None]

NARRATIVE: CASE EVENT DATE: 20031210
